FAERS Safety Report 6368703-X (Version None)
Quarter: 2009Q3

REPORT INFORMATION
  Report Type: 
  Country: None (occurrence: None)
  Receive Date: 20090916
  Receipt Date: 20090904
  Transmission Date: 20100115
  Serious: Yes (Other)
  Sender: FDA-Public Use
  Company Number: DSA_41601_2009

PATIENT
  Sex: Female

DRUGS (1)
  1. WELLBUTRIN XL [Suspect]
     Indication: DRUG USE FOR UNKNOWN INDICATION
     Dosage: DF

REACTIONS (4)
  - DRUG WITHDRAWAL SYNDROME [None]
  - FORMICATION [None]
  - HEARING IMPAIRED [None]
  - VISUAL IMPAIRMENT [None]
